FAERS Safety Report 7536090-7 (Version None)
Quarter: 2011Q2

REPORT INFORMATION
  Report Type: 
  Country: None (occurrence: None)
  Receive Date: 20110609
  Receipt Date: 20110520
  Transmission Date: 20111010
  Serious: Yes (Other)
  Sender: FDA-Public Use
  Company Number: FR-SANOFI-AVENTIS-2011SA015999

PATIENT
  Age: 87 Year
  Sex: Male

DRUGS (6)
  1. IRBESARTAN AND HYDROCHLOROTHIAZIDE [Concomitant]
     Dosage: DOSE:1 UNIT(S)
     Route: 048
  2. ASPIRIN [Concomitant]
     Route: 048
     Dates: start: 20110311
  3. SOTALOL HCL [Concomitant]
     Route: 048
  4. BISOPROLOL FUMARATE [Concomitant]
     Route: 048
     Dates: start: 20110311
  5. MULTAQ [Suspect]
     Route: 048
     Dates: start: 20110311
  6. ASPIRIN [Concomitant]
     Route: 048
     Dates: end: 20110301

REACTIONS (5)
  - ATRIAL FIBRILLATION [None]
  - EXTRASYSTOLES [None]
  - DIARRHOEA [None]
  - BRADYCARDIA [None]
  - ASTHENIA [None]
